FAERS Safety Report 16046086 (Version 1)
Quarter: 2019Q1

REPORT INFORMATION
  Report Type: Report from Study
  Country: US (occurrence: US)
  Receive Date: 20190307
  Receipt Date: 20190307
  Transmission Date: 20190418
  Serious: Yes (Hospitalization, Disabling, Other)
  Sender: FDA-Public Use
  Company Number: US-SA-2019SA059314

PATIENT
  Age: 64 Year
  Sex: Male

DRUGS (1)
  1. INSULIN GLARGINE [Suspect]
     Active Substance: INSULIN GLARGINE
     Indication: DIABETES MELLITUS
     Dosage: 100 U, QD
     Route: 058

REACTIONS (3)
  - Cardiac operation [Unknown]
  - Disability [Not Recovered/Not Resolved]
  - Blood glucose abnormal [Recovered/Resolved]
